FAERS Safety Report 10099001 (Version 1)
Quarter: 2014Q2

REPORT INFORMATION
  Report Type: Spontaneous
  Country: US (occurrence: None)
  Receive Date: 20140422
  Receipt Date: 20140422
  Transmission Date: 20141212
  Serious: No
  Sender: FDA-Public Use
  Company Number: None

PATIENT
  Age: 45 Year
  Sex: Female
  Weight: 72.58 kg

DRUGS (1)
  1. CLARITHROMYCIN 500 MG [Suspect]
     Indication: UPPER RESPIRATORY TRACT INFECTION
     Dosage: 2 PILLS, ONCE DAILY, TAKEN BY MOUTH
     Route: 048
     Dates: start: 20140413, end: 20140421

REACTIONS (2)
  - Dysgeusia [None]
  - Dysgeusia [None]
